FAERS Safety Report 9081705 (Version 1)
Quarter: 2013Q1

REPORT INFORMATION
  Report Type: Report from Study
  Country: US (occurrence: US)
  Receive Date: 20130130
  Receipt Date: 20130130
  Transmission Date: 20140127
  Serious: No
  Sender: FDA-Public Use
  Company Number: US-ABBOTT-12P-163-0966311-00

PATIENT
  Age: 38 Year
  Sex: Female

DRUGS (3)
  1. HUMIRA 40 MG/0.8 ML PEN [Suspect]
     Indication: CROHN^S DISEASE
     Dates: start: 201202
  2. PREDNISONE [Concomitant]
     Indication: CROHN^S DISEASE
     Dosage: 50MG DAILY
     Route: 048
  3. VITAMIN D [Concomitant]
     Indication: CROHN^S DISEASE
     Dosage: WEEKLY
     Route: 048

REACTIONS (1)
  - Injection site pain [Recovered/Resolved]
